FAERS Safety Report 4659507-4 (Version None)
Quarter: 2005Q2

REPORT INFORMATION
  Report Type: 
  Country: None (occurrence: None)
  Receive Date: 20050412
  Receipt Date: 20050224
  Transmission Date: 20051028
  Serious: No
  Sender: FDA-Public Use
  Company Number: 2005S1000031

PATIENT
  Sex: 0

DRUGS (2)
  1. CUBICIN [Suspect]
     Dosage: IV
     Route: 042
  2. VANCOMYCIN [Concomitant]

REACTIONS (1)
  - RASH [None]
